FAERS Safety Report 16036489 (Version 1)
Quarter: 2019Q1

REPORT INFORMATION
  Report Type: Spontaneous
  Country: FR (occurrence: FR)
  Receive Date: 20190305
  Receipt Date: 20190305
  Transmission Date: 20190418
  Serious: Yes (Hospitalization)
  Sender: FDA-Public Use
  Company Number: FR-PFIZER INC-2019088847

PATIENT
  Age: 68 Year
  Sex: Female
  Weight: 44 kg

DRUGS (11)
  1. SOLU-MEDROL [Suspect]
     Active Substance: METHYLPREDNISOLONE SODIUM SUCCINATE
     Indication: SQUAMOUS CELL CARCINOMA
     Dosage: 60 MG, WEEKLY[1 INJECTION PER WEEK]
     Route: 042
     Dates: start: 20181112, end: 20181231
  2. ERBITUX [Suspect]
     Active Substance: CETUXIMAB
     Indication: SQUAMOUS CELL CARCINOMA
     Dosage: 560 MG, WEEKLY [THEN 350 MG 1 INJ / WEEK]
     Route: 042
     Dates: start: 20181112, end: 20181231
  3. PREDNISONE. [Concomitant]
     Active Substance: PREDNISONE
     Dosage: 20 MG 2 TABLETS (40MG) AT MIDDAY
  4. DOLIPRANE [Concomitant]
     Active Substance: ACETAMINOPHEN
     Dosage: 1 CAPSULE MORNING - 1 CAPSULE MIDDAY - 1 CAPSULE EVENING
  5. POLARAMINE [Suspect]
     Active Substance: DEXCHLORPHENIRAMINE MALEATE
     Indication: SQUAMOUS CELL CARCINOMA
     Dosage: 5 MG, WEEKLY[ 1 INJECTION PER WEEK]
     Route: 042
     Dates: start: 20181112, end: 20181231
  6. ORAMORPH [Concomitant]
     Active Substance: MORPHINE SULFATE
     Dosage: 20 MG / ML, AS NEEDED
  7. MOVICOL [Concomitant]
     Active Substance: POLYETHYLENE GLYCOL 3350\POTASSIUM CHLORIDE\SODIUM BICARBONATE\SODIUM CHLORIDE
     Dosage: 2 SACHETS MORNING
  8. METOCLOPRAMIDE. [Concomitant]
     Active Substance: METOCLOPRAMIDE
     Indication: NAUSEA
  9. SKENAN [Concomitant]
     Active Substance: MORPHINE SULFATE
     Dosage: 30 MG AT 8AM - 30 MG AT 8PM
  10. PREGABALIN SANDOZ [Concomitant]
     Active Substance: PREGABALIN
     Dosage: 2 CAPSULES MORNING - 2 CAPSULES EVENING
  11. PHOSPHONEUROS [Concomitant]
     Active Substance: CALCIUM PHOSPHATE, DIBASIC, ANHYDROUS\MAGNESIUM GLYCEROPHOSPHATE\PHOSPHORIC ACID\SODIUM PHOSPHATE, DIBASIC
     Dosage: 50 DROPS MORNING, NOON AND EVENING

REACTIONS (2)
  - Erythema [Not Recovered/Not Resolved]
  - Pruritus [Not Recovered/Not Resolved]

NARRATIVE: CASE EVENT DATE: 20190115
